FAERS Safety Report 16248682 (Version 4)
Quarter: 2019Q3

REPORT INFORMATION
  Report Type: Spontaneous
  Country: FR (occurrence: FR)
  Receive Date: 20190429
  Receipt Date: 20190924
  Transmission Date: 20191004
  Serious: Yes (Hospitalization, Other)
  Sender: FDA-Public Use
  Company Number: FR-ACCORD-124372

PATIENT
  Age: 73 Year
  Sex: Female
  Weight: 64 kg

DRUGS (4)
  1. ATACAND [Suspect]
     Active Substance: CANDESARTAN CILEXETIL
     Indication: CHRONIC KIDNEY DISEASE
     Dosage: STRENGTH: 8 MG  TABLET BREACKABLE. ALSO RECEIVED FROM JUN-2012 TO 21-JAN-2019.
     Route: 048
     Dates: start: 201207, end: 20190122
  2. VIREAD [Suspect]
     Active Substance: TENOFOVIR DISOPROXIL FUMARATE
     Indication: CHRONIC HEPATITIS B
     Dosage: ALSO RECEIVED FROM 2012.
     Route: 048
     Dates: start: 2013
  3. FUROSEMIDE. [Suspect]
     Active Substance: FUROSEMIDE
     Indication: CHRONIC KIDNEY DISEASE
     Dosage: ALSO RECEIVED FROM JUN-2012 TO 21-JAN-2019.
     Route: 048
     Dates: start: 201207, end: 20190122
  4. DICLOFENAC [Suspect]
     Active Substance: DICLOFENAC
     Indication: PAIN
     Dosage: ALSO RECEIVED FROM NOV-2018 TO 21-JAN-2019.
     Route: 003
     Dates: start: 201812, end: 20190122

REACTIONS (1)
  - Acute kidney injury [Recovering/Resolving]

NARRATIVE: CASE EVENT DATE: 20190122
